FAERS Safety Report 9866788 (Version 1)
Quarter: 2014Q1

REPORT INFORMATION
  Report Type: Spontaneous
  Country: GB (occurrence: GB)
  Receive Date: 20140204
  Receipt Date: 20140204
  Transmission Date: 20141002
  Serious: Yes (Other)
  Sender: FDA-Public Use
  Company Number: GB-ACCORD-021606

PATIENT
  Age: 81 Year
  Sex: Female
  Weight: 92 kg

DRUGS (15)
  1. TRAMADOL/TRAMADOL HYDROCHLORIDE [Suspect]
     Indication: PRODUCT USED FOR UNKNOWN INDICATION
     Route: 048
     Dates: start: 20130416, end: 20131112
  2. FUROSEMIDE [Concomitant]
     Dates: start: 20131002, end: 20131030
  3. PARACETAMOL [Concomitant]
     Dates: start: 20130809, end: 20131030
  4. INADINE [Concomitant]
     Dates: start: 20131018, end: 20131108
  5. OXYCODONE [Concomitant]
     Dates: start: 20131028, end: 20131111
  6. AZATHIOPRINE [Concomitant]
  7. SIMVASTATIN [Concomitant]
     Dates: start: 20130809, end: 20131030
  8. INFLUENZA VACCINE [Concomitant]
     Dates: start: 20131023, end: 20131024
  9. ENALAPRIL [Concomitant]
     Dates: start: 20130809, end: 20131030
  10. LANSOPRAZOLE [Concomitant]
     Dates: start: 20130809, end: 20131030
  11. ATENOLOL/ATENOLOL HYDROCHLORIDE [Concomitant]
     Dates: start: 20130809, end: 20131030
  12. CLOPIDOGREL [Concomitant]
     Dates: start: 20130809, end: 20131030
  13. AMITRIPTYLINE [Concomitant]
     Dates: start: 20130809, end: 20131030
  14. METFORMIN [Concomitant]
     Dates: start: 20131002, end: 20131030
  15. PRO D3 [Concomitant]
     Dates: start: 20130809, end: 20131030

REACTIONS (2)
  - Depression [Recovered/Resolved]
  - Withdrawal syndrome [Unknown]
